FAERS Safety Report 8558287-X (Version None)
Quarter: 2012Q3

REPORT INFORMATION
  Report Type: 
  Country: None (occurrence: None)
  Receive Date: 20120801
  Receipt Date: 20120724
  Transmission Date: 20120928
  Serious: Yes (Hospitalization)
  Sender: FDA-Public Use
  Company Number: US-ELI_LILLY_AND_COMPANY-US201207007714

PATIENT
  Sex: Female

DRUGS (18)
  1. MYCOPHENOLATE MOFETIL [Concomitant]
     Dosage: UNK
  2. MULTI-VITAMIN [Concomitant]
     Dosage: UNK
  3. LISINOPRIL [Concomitant]
     Indication: BLOOD PRESSURE
     Dosage: UNK
  4. STOOL SOFTENER [Concomitant]
     Dosage: UNK
  5. PREDNISONE [Concomitant]
     Dosage: 50 MG, UNK
  6. SUCRALFATE [Concomitant]
     Dosage: UNK
  7. CALCIUM [Concomitant]
     Dosage: UNK
  8. OMEPRAZOLE [Concomitant]
     Dosage: UNK
  9. PREDNISONE [Concomitant]
     Dosage: 5 MG, UNK
  10. FUROSEMIDE [Concomitant]
     Dosage: UNK
  11. FORTEO [Suspect]
     Indication: OSTEOPOROSIS
     Dosage: UNK, QD
     Dates: start: 20110601, end: 20120329
  12. ASPIRIN [Concomitant]
     Dosage: UNK
  13. TRAZONE [Concomitant]
     Dosage: UNK
  14. PLAQUENIL [Concomitant]
     Dosage: UNK
  15. ATENOLOL [Concomitant]
     Indication: HEART RATE INCREASED
     Dosage: UNK
  16. TRAMADOL HYDROCHLORIDE [Concomitant]
     Dosage: UNK
  17. POTASSIUM [Concomitant]
     Dosage: UNK
  18. VITAMIN D [Concomitant]
     Dosage: UNK

REACTIONS (14)
  - MYOCARDIAL INFARCTION [None]
  - DIARRHOEA [None]
  - CYSTITIS [None]
  - DIABETES MELLITUS [None]
  - BLOOD GLUCOSE INCREASED [None]
  - IMMUNOSUPPRESSION [None]
  - INFECTION [None]
  - STAPHYLOCOCCAL INFECTION [None]
  - BALANCE DISORDER [None]
  - PNEUMONIA [None]
  - ASTHENIA [None]
  - MUSCULAR WEAKNESS [None]
  - HEART RATE INCREASED [None]
  - SEPSIS [None]
